FAERS Safety Report 7802083-5 (Version None)
Quarter: 2011Q4

REPORT INFORMATION
  Report Type: 
  Country: None (occurrence: None)
  Receive Date: 20111007
  Receipt Date: 20110926
  Transmission Date: 20120403
  Serious: Yes (Other)
  Sender: FDA-Public Use
  Company Number: US-ELI_LILLY_AND_COMPANY-US201108008782

PATIENT
  Sex: Female
  Weight: 141.5 kg

DRUGS (2)
  1. ZYPREXA [Suspect]
     Indication: SCHIZOPHRENIA
     Dosage: 20 MG, QD
     Route: 048
     Dates: start: 20101221, end: 20110808
  2. ATIVAN [Concomitant]
     Dosage: 1 MG, EACH EVENING

REACTIONS (3)
  - WEIGHT INCREASED [None]
  - OEDEMA [None]
  - INCREASED APPETITE [None]
